FAERS Safety Report 9444633 (Version 2)
Quarter: 2014Q1

REPORT INFORMATION
  Report Type: Spontaneous
  Country: US (occurrence: US)
  Receive Date: 20130807
  Receipt Date: 20140116
  Transmission Date: 20141002
  Serious: Yes (Hospitalization)
  Sender: FDA-Public Use
  Company Number: US-B.I. PHARMACEUTICALS,INC./RIDGEFIELD-2013-BI-23854BP

PATIENT
  Age: 72 Year
  Sex: Female
  Weight: 102.06 kg

DRUGS (9)
  1. PRADAXA [Suspect]
     Indication: ATRIAL FIBRILLATION
     Dosage: 300 MG
     Dates: start: 20110504, end: 20110814
  2. DIGOXIN [Concomitant]
     Dosage: 0.5 MG
     Dates: start: 20110412, end: 20121104
  3. LISINOPRIL [Concomitant]
     Dates: start: 20101208, end: 20110922
  4. METFORMIN HCL [Concomitant]
     Dates: start: 20110627, end: 20121105
  5. POTASSIUM CHLORIDE [Concomitant]
  6. AMLODIPINE [Concomitant]
     Dosage: 5 MG
  7. SIMVASTATIN [Concomitant]
     Dosage: 80 MG
  8. ATENOLOL [Concomitant]
     Dosage: 50 MG
  9. BENICAR HYDROCHLOROTHIAZIDE [Concomitant]

REACTIONS (6)
  - Gastrointestinal haemorrhage [Unknown]
  - Haemorrhagic anaemia [Unknown]
  - Fall [Unknown]
  - Renal failure acute [Unknown]
  - Coagulopathy [Unknown]
  - Contusion [Unknown]
